FAERS Safety Report 9494741 (Version 1)
Quarter: 2013Q3

REPORT INFORMATION
  Report Type: Spontaneous
  Country: US (occurrence: None)
  Receive Date: 20130830
  Receipt Date: 20130830
  Transmission Date: 20140515
  Serious: Yes (Other)
  Sender: FDA-Public Use
  Company Number: None

PATIENT
  Age: 60 Year
  Sex: Female
  Weight: 63.5 kg

DRUGS (1)
  1. ALPRAZOLAM [Suspect]
     Indication: BIPOLAR DISORDER
     Dosage: 1MG, 6 X A DAY
     Dates: start: 201307, end: 201308

REACTIONS (9)
  - Diarrhoea [None]
  - Headache [None]
  - Dizziness [None]
  - Breath odour [None]
  - Erythema [None]
  - Weight decreased [None]
  - Insomnia [None]
  - Anxiety [None]
  - Panic attack [None]
